FAERS Safety Report 9629824 (Version 2)
Quarter: 2013Q4

REPORT INFORMATION
  Report Type: Spontaneous
  Country: US (occurrence: US)
  Receive Date: 20131017
  Receipt Date: 20131227
  Transmission Date: 20140711
  Serious: Yes (Life-Threatening, Hospitalization)
  Sender: FDA-Public Use
  Company Number: US-BRISTOL-MYERS SQUIBB COMPANY-19588359

PATIENT
  Age: 55 Year
  Sex: Female
  Weight: 176 kg

DRUGS (18)
  1. BYETTA [Suspect]
     Route: 058
     Dates: start: 201206, end: 201212
  2. JANUVIA [Suspect]
     Dates: start: 201201, end: 201206
  3. METFORMIN HCL TABS 500MG [Concomitant]
     Route: 048
  4. NEXIUM [Concomitant]
  5. NEURONTIN [Concomitant]
     Route: 048
  6. AMLODIPINE [Concomitant]
  7. ATORVASTATIN [Concomitant]
  8. LOSARTAN [Concomitant]
  9. MORPHINE [Concomitant]
  10. LANTUS [Concomitant]
  11. FERROUS SULFATE [Concomitant]
     Route: 048
  12. ZYRTEC [Concomitant]
     Route: 048
  13. COMBIVENT [Concomitant]
     Route: 055
  14. DOCUSATE SODIUM [Concomitant]
     Route: 048
  15. INSULIN LISPRO [Concomitant]
  16. ROXICET [Concomitant]
     Dosage: 1DF:5-325MG
     Route: 048
  17. MIRALAX [Concomitant]
  18. LASIX [Concomitant]

REACTIONS (2)
  - Pancreatic carcinoma [Unknown]
  - Pancreatitis [Unknown]
